FAERS Safety Report 23097640 (Version 1)
Quarter: 2023Q4

REPORT INFORMATION
  Report Type: Spontaneous
  Country: CN (occurrence: CN)
  Receive Date: 20231023
  Receipt Date: 20231023
  Transmission Date: 20240109
  Serious: Yes (Other)
  Sender: FDA-Public Use
  Company Number: CN-PFIZER INC-PV202300170528

PATIENT
  Age: 38 Year
  Sex: Male

DRUGS (28)
  1. AVIBACTAM SODIUM [Suspect]
     Active Substance: AVIBACTAM SODIUM
     Indication: Pneumonia
     Dosage: TIME INTERVAL: 0.33333333 DAYS: 2.5 G, 3X/DAY
     Route: 041
     Dates: start: 20230927, end: 20231001
  2. AVIBACTAM SODIUM [Suspect]
     Active Substance: AVIBACTAM SODIUM
     Indication: Pneumonia
     Dosage: TIME INTERVAL: 0.33333333 DAYS: 2.5 G, 3X/DAY
     Route: 041
     Dates: start: 20230927, end: 20230927
  3. LINEZOLID [Suspect]
     Active Substance: LINEZOLID
     Indication: Product used for unknown indication
     Dosage: 0.6 G, 2X/DAY
     Route: 041
     Dates: start: 20230926, end: 20231007
  4. POTASSIUM CHLORIDE [Suspect]
     Active Substance: POTASSIUM CHLORIDE
     Indication: Product used for unknown indication
     Dosage: 4 G, 1X/DAY
     Route: 041
     Dates: start: 20230928, end: 20230928
  5. GENTAMICIN SULFATE [Suspect]
     Active Substance: GENTAMICIN SULFATE
     Indication: Product used for unknown indication
     Dosage: 80000 IU, 2X/DAY
     Route: 048
     Dates: start: 20230927, end: 20231001
  6. SULFAMETHOXAZOLE [Suspect]
     Active Substance: SULFAMETHOXAZOLE
     Indication: Product used for unknown indication
     Dosage: TIME INTERVAL: 0.33333333 DAYS: 0.96 G, 3X/DAY
     Route: 048
     Dates: start: 20230927, end: 20230930
  7. SODIUM CHLORIDE [Suspect]
     Active Substance: SODIUM CHLORIDE
     Indication: Product used for unknown indication
     Dosage: TIME INTERVAL: 0.33333333 DAYS: 100 ML, 3X/DAY
     Route: 041
     Dates: start: 20230925, end: 20230926
  8. SODIUM CHLORIDE [Suspect]
     Active Substance: SODIUM CHLORIDE
     Indication: Product used for unknown indication
     Dosage: 100 ML, 2X/DAY
     Route: 041
     Dates: start: 20230927, end: 20230930
  9. SODIUM CHLORIDE [Suspect]
     Active Substance: SODIUM CHLORIDE
     Indication: Product used for unknown indication
     Dosage: 50 ML, 1X/DAY
     Route: 041
     Dates: start: 20230928, end: 20230928
  10. SODIUM CHLORIDE [Suspect]
     Active Substance: SODIUM CHLORIDE
     Indication: Product used for unknown indication
     Dosage: 100 ML, 2X/DAY
     Route: 041
     Dates: start: 20230925, end: 20231001
  11. SODIUM CHLORIDE [Suspect]
     Active Substance: SODIUM CHLORIDE
     Indication: Product used for unknown indication
     Dosage: TIME INTERVAL: 0.33333333 DAYS: 10 ML, 3X/DAY
     Route: 048
     Dates: start: 20230927, end: 20231001
  12. SODIUM CHLORIDE [Suspect]
     Active Substance: SODIUM CHLORIDE
     Indication: Product used for unknown indication
     Dosage: 10 ML, 1X/DAY
     Route: 048
     Dates: start: 20230927, end: 20231001
  13. SODIUM CHLORIDE [Suspect]
     Active Substance: SODIUM CHLORIDE
     Indication: Product used for unknown indication
     Dosage: TIME INTERVAL: 0.33333333 DAYS: 100 ML, 3X/DAY
     Route: 041
     Dates: start: 20230927, end: 20230927
  14. SODIUM CHLORIDE [Suspect]
     Active Substance: SODIUM CHLORIDE
     Indication: Product used for unknown indication
     Dosage: TIME INTERVAL: 0.33333333 DAYS: 100 ML, 3X/DAY
     Route: 041
     Dates: start: 20230927, end: 20231001
  15. PIPERACILLIN AND TAZOBACTAM [Suspect]
     Active Substance: PIPERACILLIN SODIUM\TAZOBACTAM SODIUM
     Indication: Product used for unknown indication
     Dosage: TIME INTERVAL: 0.33333333 DAYS: 4.5 G, 3X/DAY
     Route: 041
     Dates: start: 20230925, end: 20230926
  16. VORICONAZOLE [Suspect]
     Active Substance: VORICONAZOLE
     Indication: Product used for unknown indication
     Dosage: UNK
     Route: 065
     Dates: end: 20231001
  17. DEXTROSE [Suspect]
     Active Substance: DEXTROSE\DEXTROSE MONOHYDRATE
     Indication: Product used for unknown indication
     Dosage: 250 ML, 1X/DAY
     Route: 041
     Dates: start: 20230928, end: 20230928
  18. WATER [Suspect]
     Active Substance: WATER
     Indication: Product used for unknown indication
     Dosage: 5 ML, 2X/DAY
     Route: 065
     Dates: start: 20230925, end: 20231003
  19. WATER [Suspect]
     Active Substance: WATER
     Indication: Product used for unknown indication
     Dosage: 5 ML, 2X/DAY
     Route: 065
     Dates: start: 20230925, end: 20230925
  20. GANCICLOVIR [Suspect]
     Active Substance: GANCICLOVIR
     Indication: Product used for unknown indication
     Dosage: 0.25 G, 2X/DAY
     Route: 041
     Dates: start: 20230927, end: 20230930
  21. TIGECYCLINE [Suspect]
     Active Substance: TIGECYCLINE
     Indication: Product used for unknown indication
     Dosage: 100 MG, 2X/DAY
     Route: 041
     Dates: start: 20230925, end: 20231001
  22. AMINO ACIDS, SOURCE UNSPECIFIED [Suspect]
     Active Substance: AMINO ACIDS, SOURCE UNSPECIFIED
     Indication: Product used for unknown indication
     Dosage: 500 ML, 1X/DAY
     Route: 041
     Dates: start: 20230928, end: 20230928
  23. VANCOMYCIN HYDROCHLORIDE [Suspect]
     Active Substance: VANCOMYCIN HYDROCHLORIDE
     Indication: Product used for unknown indication
     Dosage: TIME INTERVAL: 0.33333333 DAYS: 125 MG, 3X/DAY
     Route: 048
     Dates: start: 20230927, end: 20231001
  24. VANCOMYCIN HYDROCHLORIDE [Suspect]
     Active Substance: VANCOMYCIN HYDROCHLORIDE
     Indication: Product used for unknown indication
     Dosage: 125 MG, 1X/DAY
     Route: 048
     Dates: start: 20230927, end: 20231001
  25. MEROPENEM [Suspect]
     Active Substance: MEROPENEM
     Indication: Product used for unknown indication
     Dosage: UNK
     Route: 065
  26. AMPHOTERICIN B [Suspect]
     Active Substance: AMPHOTERICIN B
     Indication: Product used for unknown indication
     Dosage: 5 MG, 2X/DAY
     Route: 065
     Dates: start: 20230925, end: 20230925
  27. AMPHOTERICIN B [Suspect]
     Active Substance: AMPHOTERICIN B
     Indication: Product used for unknown indication
     Dosage: 5 MG, 2X/DAY
     Route: 065
     Dates: start: 20230925, end: 20231003
  28. VITAMINS [Suspect]
     Active Substance: VITAMINS
     Indication: Product used for unknown indication
     Dosage: 5 ML, 1X/DAY
     Route: 041
     Dates: start: 20230928, end: 20230928

REACTIONS (3)
  - Diarrhoea [Recovered/Resolved]
  - Disease recurrence [Recovered/Resolved]
  - Off label use [Unknown]
